FAERS Safety Report 7967891-9 (Version None)
Quarter: 2011Q4

REPORT INFORMATION
  Report Type: 
  Country: None (occurrence: None)
  Receive Date: 20111209
  Receipt Date: 20111006
  Transmission Date: 20120403
  Serious: Yes (Other)
  Sender: FDA-Public Use
  Company Number: IT-ROCHE-803833

PATIENT
  Sex: Female
  Weight: 57 kg

DRUGS (7)
  1. FOLIC ACID [Concomitant]
  2. PROGESTERONE [Concomitant]
  3. ACTEMRA [Suspect]
     Indication: RHEUMATOID ARTHRITIS
     Dosage: LAST DOSE PRIOR TO SAE: 31 AUGUST 2011, TEMPORARILY INTERRUPTED, FORM: VIAL
     Route: 042
     Dates: start: 20101130, end: 20110831
  4. IRBESARTAN [Concomitant]
  5. IBUPROFEN [Concomitant]
  6. ACETAMINOPHEN [Concomitant]
  7. METHOTREXATE [Concomitant]

REACTIONS (1)
  - NON-HODGKIN'S LYMPHOMA [None]
